FAERS Safety Report 9126538 (Version 1)
Quarter: 2013Q1

REPORT INFORMATION
  Report Type: Spontaneous
  Country: CA (occurrence: CA)
  Receive Date: 20130121
  Receipt Date: 20130121
  Transmission Date: 20140127
  Serious: No
  Sender: FDA-Public Use
  Company Number: PHHY2013CA005406

PATIENT
  Sex: Male

DRUGS (2)
  1. TASIGNA [Suspect]
     Indication: CHRONIC MYELOID LEUKAEMIA
     Dosage: 400 MG, BID
     Route: 048
  2. STEROIDS NOS [Concomitant]

REACTIONS (4)
  - Rash [Unknown]
  - Dry skin [Unknown]
  - Dermatitis [Unknown]
  - Dyspepsia [Unknown]
